FAERS Safety Report 20303470 (Version 2)
Quarter: 2022Q1

REPORT INFORMATION
  Report Type: Spontaneous
  Country: DE (occurrence: DE)
  Receive Date: 20220106
  Receipt Date: 20220302
  Transmission Date: 20220423
  Serious: Yes (Death, Other)
  Sender: FDA-Public Use
  Company Number: DE-NOVARTISPH-NVSC2022DE001685

PATIENT
  Sex: Female

DRUGS (1)
  1. KYMRIAH [Suspect]
     Active Substance: TISAGENLECLEUCEL
     Indication: Diffuse large B-cell lymphoma
     Dosage: UNK, ONCE/SINGLE
     Route: 042
     Dates: start: 20210908, end: 20210908

REACTIONS (3)
  - Bacterial sepsis [Fatal]
  - Cytokine release syndrome [Recovering/Resolving]
  - Immune effector cell-associated neurotoxicity syndrome [Recovering/Resolving]

NARRATIVE: CASE EVENT DATE: 20210101
